FAERS Safety Report 7004595-3 (Version None)
Quarter: 2010Q3

REPORT INFORMATION
  Report Type: 
  Country: None (occurrence: None)
  Receive Date: 20100921
  Receipt Date: 20100910
  Transmission Date: 20110219
  Serious: Yes (Hospitalization)
  Sender: FDA-Public Use
  Company Number: BR-ELI_LILLY_AND_COMPANY-BR201008005809

PATIENT
  Sex: Female

DRUGS (9)
  1. FORTEO [Suspect]
     Indication: OSTEOPOROSIS
     Dosage: 20 UG, DAILY (1/D)
     Route: 058
     Dates: start: 20080101
  2. OMEPRAZOLE [Concomitant]
     Dosage: UNK, UNKNOWN
     Route: 065
  3. PREDNISONA [Concomitant]
     Dosage: UNK, UNKNOWN
     Route: 065
  4. CALCIUM CARBONATE [Concomitant]
     Dosage: UNK, UNKNOWN
     Route: 065
  5. VITAMIN D [Concomitant]
     Dosage: UNK, UNKNOWN
     Route: 065
  6. DIPIRONA [Concomitant]
     Dosage: UNK, UNKNOWN
     Route: 065
  7. RANITIDINE [Concomitant]
     Dosage: UNK, UNKNOWN
     Route: 065
  8. DOMPERIDONE [Concomitant]
     Dosage: UNK, UNKNOWN
     Route: 065
  9. ESPIRONOLACTONA [Concomitant]
     Dosage: UNK, UNKNOWN
     Route: 065

REACTIONS (4)
  - ASTHENIA [None]
  - DECREASED APPETITE [None]
  - PNEUMONIA [None]
  - RESPIRATORY TRACT INFECTION [None]
